FAERS Safety Report 6788909-5 (Version None)
Quarter: 2010Q2

REPORT INFORMATION
  Report Type: 
  Country: None (occurrence: None)
  Receive Date: 20100623
  Receipt Date: 20080528
  Transmission Date: 20101027
  Serious: No
  Sender: FDA-Public Use
  Company Number: US-PFIZER INC-2008046073

PATIENT
  Sex: Female
  Weight: 44.5 kg

DRUGS (6)
  1. GEODON [Suspect]
     Dates: start: 20080527
  2. LAMICTAL [Concomitant]
  3. ORAL CONTRACEPTIVE NOS [Concomitant]
     Indication: CONTRACEPTION
  4. KEFLEX [Concomitant]
     Dates: end: 20080525
  5. CEPHALEXIN [Concomitant]
     Dates: end: 20080525
  6. METRONIDAZOLE [Concomitant]
     Dates: end: 20080525

REACTIONS (4)
  - CHEST PAIN [None]
  - DIZZINESS [None]
  - FEELING HOT [None]
  - INSOMNIA [None]
